FAERS Safety Report 14430758 (Version 1)
Quarter: 2018Q1

REPORT INFORMATION
  Report Type: Spontaneous
  Country: US (occurrence: US)
  Receive Date: 20180123
  Receipt Date: 20180123
  Transmission Date: 20180509
  Serious: Yes (Life-Threatening, Disabling, Other)
  Sender: FDA-Public Use
  Company Number: None

PATIENT
  Age: 62 Year
  Sex: Female
  Weight: 75.6 kg

DRUGS (2)
  1. MULTIPLE VITAMINS [Concomitant]
     Active Substance: VITAMINS
  2. PRASUGREL. [Suspect]
     Active Substance: PRASUGREL
     Indication: VASCULAR DEVICE USER
     Dosage: ?          QUANTITY:1 TABLET(S);?
     Route: 048
     Dates: start: 20180119, end: 20180121

REACTIONS (3)
  - Headache [None]
  - Peripheral swelling [None]
  - Blood pressure increased [None]

NARRATIVE: CASE EVENT DATE: 20180119
